FAERS Safety Report 7132822-0 (Version None)
Quarter: 2010Q4

REPORT INFORMATION
  Report Type: 
  Country: None (occurrence: None)
  Receive Date: 20101202
  Receipt Date: 20101022
  Transmission Date: 20110411
  Serious: No
  Sender: FDA-Public Use
  Company Number: US-PFIZER INC-2010135712

PATIENT
  Sex: Female
  Weight: 54 kg

DRUGS (9)
  1. CHANTIX [Suspect]
     Indication: SMOKING CESSATION THERAPY
     Dosage: 0.5 MG, 1X/DAY
     Route: 048
     Dates: start: 20101101, end: 20101107
  2. XANAX [Suspect]
     Indication: ANXIETY
     Dosage: UNK
     Route: 048
  3. PROZAC [Concomitant]
     Dosage: 60 MG, 1X/DAY
     Route: 048
  4. ZANAFLEX [Concomitant]
     Indication: MUSCLE RELAXANT THERAPY
     Dosage: UNK
  5. NORCO [Concomitant]
     Dosage: 10/325 MG, AS NEEDED
  6. ESTRADIOL [Concomitant]
     Indication: MENOPAUSE
     Dosage: 2 MG, 1X/DAY
     Route: 048
  7. DURAGESIC-100 [Concomitant]
     Indication: MIGRAINE
     Dosage: 100 MG, EVERY 72 HOURS
     Route: 062
  8. SOMINEX [Concomitant]
     Indication: SLEEP DISORDER
     Dosage: UNK
  9. UNISOM [Concomitant]
     Indication: SLEEP DISORDER
     Dosage: UNK

REACTIONS (5)
  - ANXIETY [None]
  - FATIGUE [None]
  - HEADACHE [None]
  - INSOMNIA [None]
  - WITHDRAWAL SYNDROME [None]
